FAERS Safety Report 7284454-1 (Version None)
Quarter: 2011Q1

REPORT INFORMATION
  Report Type: 
  Country: None (occurrence: None)
  Receive Date: 20110209
  Receipt Date: 20110207
  Transmission Date: 20110831
  Serious: Yes (Other)
  Sender: FDA-Public Use
  Company Number: US-PFIZER INC-2010096987

PATIENT
  Sex: Female
  Weight: 70.3 kg

DRUGS (9)
  1. ALLEGRA D 24 HOUR [Concomitant]
     Indication: HYPERSENSITIVITY
     Dosage: UNK
  2. ALBUTEROL [Concomitant]
     Dosage: UNK
  3. SPIRIVA [Concomitant]
     Dosage: 18 UG, 1X/DAY
  4. RELPAX [Suspect]
     Indication: MIGRAINE
     Dosage: 40 MG, AS NEEDED
     Route: 048
     Dates: start: 20070101
  5. VALIUM [Concomitant]
     Indication: VERTIGO
     Dosage: UNK
  6. RESTORIL [Concomitant]
     Indication: VERTIGO
     Dosage: UNK
  7. MONTELUKAST SODIUM [Concomitant]
     Indication: ASTHMA
     Dosage: UNK
  8. ADDERALL 10 [Concomitant]
     Indication: MULTIPLE SCLEROSIS
     Dosage: UNK
  9. XANAX [Concomitant]
     Indication: VERTIGO
     Dosage: UNK

REACTIONS (3)
  - FIBROMYALGIA [None]
  - MIGRAINE [None]
  - PAIN [None]
